FAERS Safety Report 5318174-7 (Version None)
Quarter: 2007Q2

REPORT INFORMATION
  Report Type: 
  Country: None (occurrence: None)
  Receive Date: 20070507
  Receipt Date: 20070430
  Transmission Date: 20071010
  Serious: Yes (Disabling)
  Sender: FDA-Public Use
  Company Number: US-ASTRAZENECA-2006UW25421

PATIENT
  Age: 59 Year
  Sex: Female
  Weight: 79.5 kg

DRUGS (2)
  1. SEROQUEL [Suspect]
     Indication: DEPRESSION
     Route: 048
     Dates: start: 19970101, end: 20060101
  2. RISPERDAL [Concomitant]

REACTIONS (2)
  - BLINDNESS [None]
  - DIABETES MELLITUS [None]
